FAERS Safety Report 9201256 (Version 2)
Quarter: 2013Q2

REPORT INFORMATION
  Report Type: Spontaneous
  Country: US (occurrence: US)
  Receive Date: 20130401
  Receipt Date: 20130502
  Transmission Date: 20140414
  Serious: Yes (Other)
  Sender: FDA-Public Use
  Company Number: PHEH2013US007259

PATIENT
  Sex: Female

DRUGS (4)
  1. EXFORGE [Suspect]
     Dosage: 1 DF (160MG VALS/ 10MG AMLO), UNK
  2. HYDROCHLOROTHIAZIDE,VALSARTAN [Suspect]
     Dosage: UNK UKN, UNK
  3. TOPROL XL [Suspect]
     Dosage: UNK UKN, UNK
  4. WELCHOL [Suspect]
     Dosage: UNK UKN, UNK

REACTIONS (1)
  - Blood pressure inadequately controlled [Unknown]
